FAERS Safety Report 25962801 (Version 1)
Quarter: 2025Q4

REPORT INFORMATION
  Report Type: Spontaneous
  Country: US (occurrence: US)
  Receive Date: 20251027
  Receipt Date: 20251027
  Transmission Date: 20260117
  Serious: Yes (Hospitalization, Other)
  Sender: INCYTE
  Company Number: US-INCYTE CORPORATION-2025IN011725

PATIENT
  Age: 78 Year

DRUGS (1)
  1. JAKAFI [Suspect]
     Active Substance: RUXOLITINIB
     Indication: Myelodysplastic syndrome unclassifiable
     Dosage: 15 MILLIGRAM, BID

REACTIONS (2)
  - Pneumonia bacterial [Unknown]
  - Off label use [Unknown]
